FAERS Safety Report 24120717 (Version 1)
Quarter: 2024Q3

REPORT INFORMATION
  Report Type: Other
  Country: CN (occurrence: CN)
  Receive Date: 20240722
  Receipt Date: 20240722
  Transmission Date: 20241017
  Serious: Yes (Hospitalization, Other)
  Sender: Spectra Medical Devices
  Company Number: CN-Spectra Medical Devices, LLC-2159428

PATIENT
  Age: 53 Year
  Sex: Male
  Weight: 65 kg

DRUGS (1)
  1. LIDOCAINE HYDROCHLORIDE [Suspect]
     Active Substance: LIDOCAINE HYDROCHLORIDE
     Indication: Nerve block
     Route: 065

REACTIONS (9)
  - Blindness [Recovered/Resolved]
  - Medication error [Unknown]
  - Headache [Recovered/Resolved]
  - Restlessness [Recovered/Resolved]
  - Loss of consciousness [Recovered/Resolved]
  - Visual acuity reduced [Recovered/Resolved]
  - Fatigue [Recovered/Resolved]
  - Panic attack [Recovered/Resolved]
  - Cerebral infarction [Recovered/Resolved]
